FAERS Safety Report 8548349-5 (Version None)
Quarter: 2012Q3

REPORT INFORMATION
  Report Type: 
  Country: None (occurrence: None)
  Receive Date: 20120719
  Receipt Date: 20120719
  Transmission Date: 20120928
  Serious: Yes (Life-Threatening, Other)
  Sender: FDA-Public Use
  Company Number: None

PATIENT
  Sex: Female
  Weight: 71.2147 kg

DRUGS (4)
  1. ZIPRASIDONE HCL [Suspect]
     Indication: SCHIZOPHRENIA
     Dosage: 60MG ONCE DAILY PO
     Route: 048
     Dates: start: 20120328
  2. ZIPRASIDONE HCL [Suspect]
     Indication: BIPOLAR DISORDER
     Dosage: 60MG ONCE DAILY PO
     Route: 048
     Dates: start: 20120328
  3. ZIPRASIDONE HCL [Suspect]
     Indication: SCHIZOPHRENIA
     Dosage: 20MG ONCE DAILY PO
     Dates: start: 20120328
  4. ZIPRASIDONE HCL [Suspect]
     Indication: BIPOLAR DISORDER
     Dosage: 20MG ONCE DAILY PO
     Dates: start: 20120328

REACTIONS (3)
  - VOMITING [None]
  - SUICIDAL IDEATION [None]
  - PRODUCT SUBSTITUTION ISSUE [None]
